FAERS Safety Report 7447037-6 (Version None)
Quarter: 2011Q2

REPORT INFORMATION
  Report Type: 
  Country: None (occurrence: None)
  Receive Date: 20110429
  Receipt Date: 20101229
  Transmission Date: 20111010
  Serious: No
  Sender: FDA-Public Use
  Company Number: US-ASTRAZENECA-2010SE61381

PATIENT
  Age: 81 Year
  Sex: Female

DRUGS (3)
  1. NEXIUM [Interacting]
     Route: 048
  2. PLAVIX [Interacting]
     Route: 065
  3. NEXIUM [Suspect]
     Route: 048

REACTIONS (2)
  - DRUG INTERACTION [None]
  - DRUG INTOLERANCE [None]
